FAERS Safety Report 9608501 (Version 1)
Quarter: 2013Q4

REPORT INFORMATION
  Report Type: Spontaneous
  Country: EC (occurrence: None)
  Receive Date: 20131007
  Receipt Date: 20131007
  Transmission Date: 20140711
  Serious: Yes (Other)
  Sender: FDA-Public Use
  Company Number: 2013TP000562

PATIENT
  Age: 42 Year
  Sex: Male

DRUGS (1)
  1. VERSATIS [Suspect]
     Indication: PRODUCT USED FOR UNKNOWN INDICATION
     Dosage: 1 PATCH; TOP
     Route: 061

REACTIONS (1)
  - Arrhythmia [None]
